FAERS Safety Report 13018752 (Version 1)
Quarter: 2016Q4

REPORT INFORMATION
  Report Type: Spontaneous
  Country: FR (occurrence: FR)
  Receive Date: 20161212
  Receipt Date: 20161212
  Transmission Date: 20170207
  Serious: Yes (Other)
  Sender: FDA-Public Use
  Company Number: FR-TEVA-717662ROM

PATIENT
  Age: 30 Year
  Sex: Female

DRUGS (1)
  1. COPAXONE [Suspect]
     Active Substance: GLATIRAMER ACETATE
     Route: 058
     Dates: start: 2010

REACTIONS (13)
  - Hyperventilation [Unknown]
  - Muscular weakness [Unknown]
  - Malaise [Unknown]
  - Injection site nodule [Unknown]
  - Injection site haemorrhage [Unknown]
  - Abdominal distension [Unknown]
  - Choking [Recovered/Resolved]
  - Dyspnoea [Unknown]
  - Feeling hot [Unknown]
  - Chills [Unknown]
  - Abdominal pain upper [Unknown]
  - Tachycardia [Unknown]
  - Erythema [Unknown]

NARRATIVE: CASE EVENT DATE: 20161126
